FAERS Safety Report 4561018-1 (Version None)
Quarter: 2005Q1

REPORT INFORMATION
  Report Type: 
  Country: None (occurrence: None)
  Receive Date: 20050126
  Receipt Date: 20040805
  Transmission Date: 20050727
  Serious: No
  Sender: FDA-Public Use
  Company Number: US-BRISTOL-MYERS SQUIBB COMPANY-12663530

PATIENT
  Age: 68 Year
  Sex: Male
  Weight: 91 kg

DRUGS (7)
  1. GLUCOPHAGE [Suspect]
     Indication: DIABETES MELLITUS
     Route: 048
  2. MEVACOR [Concomitant]
  3. COUMADIN [Concomitant]
  4. LOPRESSOR [Concomitant]
  5. LASIX [Concomitant]
  6. KLOR-CON [Concomitant]
  7. RANITIDINE [Concomitant]

REACTIONS (1)
  - RASH [None]
